FAERS Safety Report 26034932 (Version 1)
Quarter: 2025Q4

REPORT INFORMATION
  Report Type: Spontaneous
  Country: US (occurrence: US)
  Receive Date: 20251112
  Receipt Date: 20251112
  Transmission Date: 20260117
  Serious: No
  Sender: SANOFI AVENTIS
  Company Number: US-SA-2025SA335593

PATIENT
  Age: 21 Year
  Sex: Female
  Weight: 63.64 kg

DRUGS (2)
  1. DUPIXENT [Suspect]
     Active Substance: DUPILUMAB
     Indication: Urticaria
     Dosage: 300 MG, QOW
     Route: 058
  2. XOLAIR [Concomitant]
     Active Substance: OMALIZUMAB
     Dosage: UNK

REACTIONS (6)
  - Urticaria [Unknown]
  - Product dose omission issue [Unknown]
  - Flushing [Recovering/Resolving]
  - Dizziness [Recovering/Resolving]
  - Nasopharyngitis [Recovering/Resolving]
  - Product use in unapproved indication [Unknown]

NARRATIVE: CASE EVENT DATE: 20250101
